FAERS Safety Report 19147983 (Version 1)
Quarter: 2021Q2

REPORT INFORMATION
  Report Type: Spontaneous
  Country: US (occurrence: US)
  Receive Date: 20210416
  Receipt Date: 20210416
  Transmission Date: 20210717
  Serious: No
  Sender: FDA-Public Use
  Company Number: US-ASTRAZENECA-2021A182483

PATIENT
  Sex: Female
  Weight: 86.2 kg

DRUGS (2)
  1. SYMBICORT [Suspect]
     Active Substance: BUDESONIDE\FORMOTEROL FUMARATE DIHYDRATE
     Indication: ASTHMA
     Dosage: 80/4.5MCG, ONE PUFF TWICE A DAY
     Route: 055
     Dates: start: 202009
  2. SYMBICORT [Suspect]
     Active Substance: BUDESONIDE\FORMOTEROL FUMARATE DIHYDRATE
     Indication: ASTHMA
     Dosage: LATELY BEEN TAKING IT ONLY AT NIGHT
     Route: 055
     Dates: start: 202009

REACTIONS (3)
  - Hypertension [Unknown]
  - Product use issue [Unknown]
  - Headache [Unknown]
